FAERS Safety Report 9422296 (Version 2)
Quarter: 2013Q3

REPORT INFORMATION
  Report Type: Spontaneous
  Country: US (occurrence: US)
  Receive Date: 20130726
  Receipt Date: 20130813
  Transmission Date: 20140515
  Serious: No
  Sender: FDA-Public Use
  Company Number: US-PFIZER INC-2013214325

PATIENT
  Sex: Female

DRUGS (2)
  1. PREMARIN [Suspect]
     Dosage: 1 G, 1X/DAY
     Route: 067
     Dates: start: 20130626, end: 20130709
  2. PREMARIN [Suspect]
     Dosage: 1 G, 2X/WEEK
     Route: 067
     Dates: start: 20130710, end: 20130718

REACTIONS (1)
  - Hypertrichosis [Unknown]
